FAERS Safety Report 10133474 (Version 1)
Quarter: 2014Q2

REPORT INFORMATION
  Report Type: Spontaneous
  Country: US (occurrence: US)
  Receive Date: 20140428
  Receipt Date: 20140428
  Transmission Date: 20141212
  Serious: Yes (Hospitalization, Other)
  Sender: FDA-Public Use
  Company Number: US-SHIRE-US201401523

PATIENT
  Age: 42 Year
  Sex: Male
  Weight: 99.77 kg

DRUGS (4)
  1. PENTASA [Suspect]
     Indication: COLITIS ULCERATIVE
     Dosage: 1000 MG (TWO 500 MG CAPSULES), 3X/DAY:TID
     Route: 048
     Dates: start: 20140404, end: 20140414
  2. PREDNISONE [Concomitant]
     Indication: COLITIS ULCERATIVE
     Dosage: 30 MG, 2X/DAY:BID (EVERY TWELVE HOURS)
     Route: 065
     Dates: start: 20140328
  3. HUMIRA [Concomitant]
     Indication: COLITIS ULCERATIVE
     Dosage: UNK UNK, 1X/2WKS
     Route: 058
     Dates: start: 20140226
  4. MERCAPTOPURINE [Concomitant]
     Indication: COLITIS ULCERATIVE
     Dosage: UNK, 1X/DAY:QD
     Route: 065
     Dates: start: 20140307

REACTIONS (3)
  - Abdominal pain upper [Recovering/Resolving]
  - Bedridden [Not Recovered/Not Resolved]
  - Weight decreased [Unknown]
